FAERS Safety Report 7083451-9 (Version None)
Quarter: 2010Q4

REPORT INFORMATION
  Report Type: 
  Country: None (occurrence: None)
  Receive Date: 20101104
  Receipt Date: 20101027
  Transmission Date: 20110411
  Serious: Yes (Hospitalization)
  Sender: FDA-Public Use
  Company Number: B0676714A

PATIENT
  Sex: Female

DRUGS (5)
  1. LAMICTAL [Suspect]
     Indication: EPILEPSY
     Dosage: 1400MG PER DAY
     Route: 048
     Dates: start: 20100924, end: 20100924
  2. TEGRETOL [Concomitant]
     Route: 048
  3. PRIMIDONE [Concomitant]
     Indication: EPILEPSY
     Dosage: 125MG PER DAY
     Route: 048
  4. HYDANTOL [Concomitant]
     Indication: EPILEPSY
     Dosage: 210MG PER DAY
     Route: 048
  5. CELOOP [Concomitant]
     Indication: GASTRITIS
     Dosage: 150MG PER DAY
     Route: 048

REACTIONS (4)
  - DEPRESSED LEVEL OF CONSCIOUSNESS [None]
  - DRUG TOXICITY [None]
  - NAUSEA [None]
  - OVERDOSE [None]
